FAERS Safety Report 14508438 (Version 1)
Quarter: 2018Q1

REPORT INFORMATION
  Report Type: Spontaneous
  Country: US (occurrence: US)
  Receive Date: 20180209
  Receipt Date: 20180209
  Transmission Date: 20180509
  Serious: No
  Sender: FDA-Public Use
  Company Number: US-B.I. PHARMACEUTICALS,INC./RIDGEFIELD-2018-BI-006803

PATIENT
  Sex: Female

DRUGS (1)
  1. OFEV [Suspect]
     Active Substance: NINTEDANIB
     Indication: PRODUCT USED FOR UNKNOWN INDICATION
     Dosage: BID;FRMSTRNGTH:150MG;FRMLTION:CPSULEADMNSTRATIONCRRCT?NRACTION(S) TAKEN WITH PRODUCT: DRUG WITHDRAWN
     Route: 048

REACTIONS (1)
  - Cough [Not Recovered/Not Resolved]
